FAERS Safety Report 7459647-0 (Version None)
Quarter: 2011Q2

REPORT INFORMATION
  Report Type: 
  Country: None (occurrence: None)
  Receive Date: 20110505
  Receipt Date: 20110502
  Transmission Date: 20111010
  Serious: Yes (Disabling)
  Sender: FDA-Public Use
  Company Number: PHHY2011CY30628

PATIENT
  Age: 51 Year
  Sex: Female

DRUGS (7)
  1. ACLASTA [Suspect]
     Indication: OSTEOPOROSIS
     Dosage: 5 MG / 100 ML PER YEAR
     Route: 042
     Dates: start: 20080301
  2. ACLASTA [Suspect]
     Dosage: 5 MG / 100 ML PER YEAR
     Route: 042
  3. ACLASTA [Suspect]
     Dosage: 5 MG / 100 ML PER YEAR
     Route: 042
  4. CALCIUM [Concomitant]
  5. ANTIBIOTICS [Concomitant]
  6. ACLASTA [Suspect]
     Dosage: 5 MG / 100 ML PER YEAR
     Route: 042
     Dates: start: 20110301
  7. ELUAN [Concomitant]

REACTIONS (6)
  - BONE DISORDER [None]
  - TOOTH ABSCESS [None]
  - ORAL DISORDER [None]
  - OSTEONECROSIS OF JAW [None]
  - PERIODONTAL DISEASE [None]
  - TOOTHACHE [None]
